FAERS Safety Report 5603773-5 (Version None)
Quarter: 2008Q1

REPORT INFORMATION
  Report Type: 
  Country: None (occurrence: None)
  Receive Date: 20080122
  Receipt Date: 20080109
  Transmission Date: 20080703
  Serious: Yes (Hospitalization)
  Sender: FDA-Public Use
  Company Number: DSU-2007-01005

PATIENT
  Age: 66 Year
  Sex: Female
  Weight: 90.2658 kg

DRUGS (7)
  1. BEICAR HCT (HYDROCHLOROTHIAZIDE, OLMESARTAN MEDOXOMIL) (TABLET) (HYDRO [Suspect]
     Indication: HYPERTENSION
     Dosage: 40/12.5 MG (QD), PER ORAL
     Route: 048
     Dates: start: 20071102, end: 20071209
  2. ASA (ACETYLSALICYLIC ACID) (ACETYLSALICYLIC ACID) [Concomitant]
  3. ALBUTEROL (SALBUTAMOL) (SALBUTAMOL) [Concomitant]
  4. LYRICA [Concomitant]
  5. TRAVATAN [Concomitant]
  6. ULTRAM [Concomitant]
  7. VITAMIN B-12 (CYANOCOBALAMIN) (CYANOCOBALAMIN) [Concomitant]

REACTIONS (2)
  - ANXIETY [None]
  - HYPERSENSITIVITY [None]
